FAERS Safety Report 14733811 (Version 3)
Quarter: 2018Q2

REPORT INFORMATION
  Report Type: Report from Study
  Country: MX (occurrence: MX)
  Receive Date: 20180409
  Receipt Date: 20180423
  Transmission Date: 20180711
  Serious: Yes (Life-Threatening, Hospitalization)
  Sender: FDA-Public Use
  Company Number: PHHY2018MX055374

PATIENT
  Age: 77 Year
  Sex: Male
  Weight: 58 kg

DRUGS (5)
  1. GABAPENTIN. [Concomitant]
     Active Substance: GABAPENTIN
     Indication: PRODUCT USED FOR UNKNOWN INDICATION
     Dosage: 2 DF, QD (APPROXIMATELY 12 YEARS AGO)
     Route: 048
  2. LIPITOR [Concomitant]
     Active Substance: ATORVASTATIN CALCIUM
     Indication: BLOOD CHOLESTEROL ABNORMAL
     Dosage: 1 DF, QD (APPROXIMATELY 1 MONTH AGO)
     Route: 048
  3. EXFORGE [Suspect]
     Active Substance: AMLODIPINE BESYLATE\VALSARTAN
     Indication: HYPERTENSION
     Dosage: 1 DF (5 MG AMLODIPINE/ 320 MG VALSARTAN), QD
     Route: 048
  4. CLEVIPREX [Concomitant]
     Active Substance: CLEVIDIPINE
     Indication: HYPERTENSION
     Dosage: 10 MG, QD
     Route: 048
  5. OMEPRAZOLE. [Concomitant]
     Active Substance: OMEPRAZOLE
     Indication: GASTROINTESTINAL DISORDER
     Dosage: 2 DF, QD (APPROXIMATELY IN 4 YEARS AGO)
     Route: 048

REACTIONS (8)
  - Concomitant disease aggravated [Unknown]
  - Haemoglobin decreased [Unknown]
  - Urinary retention [Unknown]
  - Stress [Unknown]
  - Infarction [Unknown]
  - Ulcer [Unknown]
  - Disorientation [Unknown]
  - Embolism [Unknown]

NARRATIVE: CASE EVENT DATE: 20180103
